FAERS Safety Report 5655265-5 (Version None)
Quarter: 2008Q1

REPORT INFORMATION
  Report Type: 
  Country: None (occurrence: None)
  Receive Date: 20080307
  Receipt Date: 20080228
  Transmission Date: 20080703
  Serious: Yes (Death, Hospitalization)
  Sender: FDA-Public Use
  Company Number: B0507647A

PATIENT
  Age: 60 Year
  Sex: Male
  Weight: 130 kg

DRUGS (9)
  1. ROSIGLITAZONE MALEATE [Suspect]
     Route: 048
     Dates: start: 20020123
  2. DOXAZOSIN MESYLATE [Concomitant]
     Indication: BLOOD PRESSURE
     Route: 048
     Dates: start: 19990108
  3. MAXEPA [Concomitant]
     Route: 048
     Dates: start: 20011122
  4. METFORMIN HCL [Concomitant]
     Route: 048
     Dates: start: 20011011
  5. LISINOPRIL [Concomitant]
     Indication: BLOOD PRESSURE
     Dosage: 20MG PER DAY
     Route: 048
     Dates: start: 19990510
  6. ROSUVASTATIN [Concomitant]
     Dosage: 10MG PER DAY
     Dates: start: 20040319
  7. LEVITRA [Concomitant]
     Indication: ERECTILE DYSFUNCTION
     Route: 048
     Dates: start: 20050519
  8. DIGOXIN [Concomitant]
     Indication: ATRIAL FIBRILLATION
     Route: 048
     Dates: start: 20061016
  9. VERAPAMIL [Concomitant]
     Indication: ATRIAL FIBRILLATION
     Route: 048
     Dates: start: 20050509

REACTIONS (1)
  - CARDIAC FAILURE [None]
